FAERS Safety Report 16155537 (Version 1)
Quarter: 2019Q2

REPORT INFORMATION
  Report Type: Spontaneous
  Country: KR (occurrence: KR)
  Receive Date: 20190404
  Receipt Date: 20190404
  Transmission Date: 20190711
  Serious: Yes (Other)
  Sender: FDA-Public Use
  Company Number: KR-ROCHE-2243922

PATIENT
  Age: 34 Year
  Sex: Female
  Weight: 77 kg

DRUGS (8)
  1. PERJETA [Suspect]
     Active Substance: PERTUZUMAB
     Indication: BREAST CANCER
     Route: 065
     Dates: start: 20170906
  2. PERJETA [Suspect]
     Active Substance: PERTUZUMAB
     Dosage: 18/OCT/2017, 08/NOV/2017,29/NOV/2017, 20/DEC/2017,10/JAN/2018, 31/JAN/2018, 15/MAR/2018, 05/APR/201
     Route: 065
     Dates: start: 20170927
  3. DOCETAXEL. [Suspect]
     Active Substance: DOCETAXEL
     Dosage: 26/APR/2018, 17/MAY/2018, 07/JUN/2018
     Route: 065
     Dates: start: 20180405
  4. DOCETAXEL. [Suspect]
     Active Substance: DOCETAXEL
     Indication: BREAST CANCER
     Dosage: 27/SEP/2017, 18/OCT/2017,08/NOV/2017, 29/NOV/2017, 20/DEC/2017, 10/JAN/2018, 31/JAN/2018, 22/FEB/201
     Route: 065
     Dates: start: 20170606
  5. DOCETAXEL. [Suspect]
     Active Substance: DOCETAXEL
     Route: 065
     Dates: start: 20180315
  6. LASIX [Concomitant]
     Active Substance: FUROSEMIDE
     Route: 048
  7. ALDACTONE (SOUTH KOREA) [Concomitant]
     Route: 048
  8. HERCEPTIN [Suspect]
     Active Substance: TRASTUZUMAB
     Indication: BREAST CANCER
     Route: 042

REACTIONS (3)
  - Neutrophil count decreased [Recovered/Resolved]
  - Pleural effusion [Not Recovered/Not Resolved]
  - Ascites [Not Recovered/Not Resolved]

NARRATIVE: CASE EVENT DATE: 20170918
